FAERS Safety Report 9225096 (Version 1)
Quarter: 2013Q2

REPORT INFORMATION
  Report Type: Spontaneous
  Country: US (occurrence: None)
  Receive Date: 20130410
  Receipt Date: 20130410
  Transmission Date: 20140414
  Serious: Yes (Other)
  Sender: FDA-Public Use
  Company Number: None

PATIENT
  Age: 17 Year
  Sex: Male
  Weight: 75.3 kg

DRUGS (1)
  1. VANCOMYCIN [Suspect]
     Route: 042

REACTIONS (5)
  - Rash maculo-papular [None]
  - Pruritus [None]
  - Myalgia [None]
  - Viral infection [None]
  - Drug reaction with eosinophilia and systemic symptoms [None]
